FAERS Safety Report 19222490 (Version 1)
Quarter: 2021Q2

REPORT INFORMATION
  Report Type: Spontaneous
  Country: US (occurrence: US)
  Receive Date: 20210505
  Receipt Date: 20210505
  Transmission Date: 20210717
  Serious: Yes (Hospitalization)
  Sender: FDA-Public Use
  Company Number: None

PATIENT
  Sex: Male

DRUGS (9)
  1. VITAMIN B12 [Concomitant]
     Active Substance: CYANOCOBALAMIN
  2. DIVALPROEX ER [Concomitant]
     Active Substance: DIVALPROEX SODIUM
  3. ELIQUIS [Concomitant]
     Active Substance: APIXABAN
  4. FLUOROURACOL [Concomitant]
  5. ESBRIET [Suspect]
     Active Substance: PIRFENIDONE
     Indication: IDIOPATHIC PULMONARY FIBROSIS
     Route: 048
     Dates: start: 20180425
  6. VITAMIN D3 [Concomitant]
     Active Substance: CHOLECALCIFEROL
  7. METOPROLSUC ER [Concomitant]
  8. PRAVASTATIN. [Concomitant]
     Active Substance: PRAVASTATIN
  9. RISASTIGMINE [Concomitant]

REACTIONS (1)
  - Cerebrovascular accident [None]
